FAERS Safety Report 20214115 (Version 1)
Quarter: 2021Q4

REPORT INFORMATION
  Report Type: Spontaneous
  Country: CN (occurrence: CN)
  Receive Date: 20211221
  Receipt Date: 20211221
  Transmission Date: 20220303
  Serious: Yes (Hospitalization)
  Sender: FDA-Public Use
  Company Number: CN-SCALL-2021-CN-000410

PATIENT
  Age: 54 Year
  Sex: Male
  Weight: 70 kg

DRUGS (4)
  1. RABEPRAZOLE SODIUM [Suspect]
     Active Substance: RABEPRAZOLE SODIUM
     Indication: Helicobacter infection
     Dosage: 1 DOSAGE FORMS,12 HR
     Route: 048
     Dates: start: 20210624, end: 20210707
  2. CLARITHROMYCIN [Suspect]
     Active Substance: CLARITHROMYCIN
     Dosage: 2 DOSAGE FORMS,12 HR
     Route: 048
     Dates: start: 20210624, end: 20210707
  3. FURAZOLIDONE [Suspect]
     Active Substance: FURAZOLIDONE
     Dosage: 1 DOSAGE FORMS,12 HR
     Route: 048
     Dates: start: 20210624, end: 20210707
  4. BISMUTH SUBCITRATE [Suspect]
     Active Substance: BISMUTH SUBCITRATE
     Dosage: 2 DOSAGE FORMS,12 HR
     Route: 048
     Dates: start: 20210624, end: 20210707

REACTIONS (3)
  - Temperature intolerance [Recovering/Resolving]
  - Pyrexia [Recovered/Resolved]
  - Urticaria [Recovering/Resolving]

NARRATIVE: CASE EVENT DATE: 20210708
